FAERS Safety Report 25785461 (Version 1)
Quarter: 2025Q3

REPORT INFORMATION
  Report Type: Spontaneous
  Country: EU (occurrence: EU)
  Receive Date: 20250910
  Receipt Date: 20250910
  Transmission Date: 20251021
  Serious: Yes (Other)
  Sender: AUROBINDO
  Company Number: EU-002147023-NVSC2023DE125105

PATIENT
  Age: 69 Year
  Sex: Female
  Weight: 65 kg

DRUGS (4)
  1. ANASTROZOLE [Suspect]
     Active Substance: ANASTROZOLE
     Indication: HER2 negative breast cancer
     Dosage: 1 MILLIGRAM, ONCE A DAY (1 MG, QD, TABLET)
     Route: 048
     Dates: start: 20221129
  2. CLOPIDOGREL [Suspect]
     Active Substance: CLOPIDOGREL BISULFATE
     Indication: Peripheral arterial occlusive disease
     Dosage: 75 MILLIGRAM, ONCE A DAY (75 MG, ONCE/SINGLE)
     Route: 048
     Dates: start: 20120715
  3. ROSUVASTATIN [Suspect]
     Active Substance: ROSUVASTATIN
     Indication: Blood cholesterol increased
     Dosage: 5 MILLIGRAM, ONCE A DAY (5 MG, ONCE/SINGLE)
     Route: 048
     Dates: start: 20230106
  4. AMLODIPINE [Suspect]
     Active Substance: AMLODIPINE BESYLATE
     Indication: Product used for unknown indication
     Route: 065
     Dates: start: 202305

REACTIONS (1)
  - Tremor [Recovered/Resolved]

NARRATIVE: CASE EVENT DATE: 20230526
